FAERS Safety Report 7562932-5 (Version None)
Quarter: 2011Q2

REPORT INFORMATION
  Report Type: 
  Country: None (occurrence: None)
  Receive Date: 20110525
  Receipt Date: 20110408
  Transmission Date: 20111010
  Serious: No
  Sender: FDA-Public Use
  Company Number: 326401

PATIENT
  Age: 53 Year
  Sex: Female
  Weight: 76.2 kg

DRUGS (1)
  1. VICTOZA [Suspect]
     Indication: PRODUCT USED FOR UNKNOWN INDICATION
     Dosage: 0.6 MG, 1.2 MG, QD, SUBCUTANEOUS
     Route: 058

REACTIONS (2)
  - LOSS OF CONSCIOUSNESS [None]
  - WEIGHT DECREASED [None]
